FAERS Safety Report 16655348 (Version 1)
Quarter: 2019Q3

REPORT INFORMATION
  Report Type: Spontaneous
  Country: NL (occurrence: NL)
  Receive Date: 20190801
  Receipt Date: 20190801
  Transmission Date: 20191004
  Serious: Yes (Hospitalization)
  Sender: FDA-Public Use
  Company Number: NL-TEVA-2019-NL-1086248

PATIENT
  Age: 65 Year
  Sex: Female
  Weight: 123 kg

DRUGS (7)
  1. IRINOTECAN OPLOSSING VOOR INFUUS, 20 MG/ML (MILLIGRAM PER MILLILITER) [Suspect]
     Active Substance: IRINOTECAN
     Indication: RECTOSIGMOID CANCER METASTATIC
     Dosage: 1X 300 MG PER 1 DAY
     Dates: start: 20190618, end: 20190627
  2. IRINOTECAN OPLOSSING VOOR INFUUS, 20 MG/ML (MILLIGRAM PER MILLILITER) [Suspect]
     Active Substance: IRINOTECAN
     Indication: METASTASES TO LIVER
  3. ACETYLSALICYLZUUR MYLAN 80MG [Concomitant]
  4. ATORVASTATINE 40MG [Concomitant]
  5. SPIRONOLACTON SANDOZ 50MG [Concomitant]
  6. COLECALCIFEROL 25000IE CAPSULE [Concomitant]
     Dosage: 25000IE
  7. AMLODIPINE ACCORD 5MG [Concomitant]

REACTIONS (3)
  - Decreased appetite [Recovered/Resolved]
  - Malaise [Recovered/Resolved]
  - Diarrhoea [Recovered/Resolved]

NARRATIVE: CASE EVENT DATE: 20190625
